FAERS Safety Report 16017497 (Version 2)
Quarter: 2019Q1

REPORT INFORMATION
  Report Type: Report from Study
  Country: US (occurrence: US)
  Receive Date: 20190228
  Receipt Date: 20190305
  Transmission Date: 20190418
  Serious: Yes (Hospitalization)
  Sender: FDA-Public Use
  Company Number: PHEH2019US007473

PATIENT
  Sex: Male
  Weight: 57.14 kg

DRUGS (6)
  1. OTEZLA [Concomitant]
     Active Substance: APREMILAST
     Indication: PSORIASIS
     Dosage: 30 MG, BID
     Route: 065
     Dates: start: 20140910
  2. ZOCOR [Concomitant]
     Active Substance: SIMVASTATIN
     Indication: PRODUCT USED FOR UNKNOWN INDICATION
     Dosage: 20 MG, QD
     Route: 065
  3. METHOTREXATE. [Concomitant]
     Active Substance: METHOTREXATE
     Dosage: 2.5 MG, QW
     Route: 065
     Dates: start: 20180801
  4. COSENTYX [Suspect]
     Active Substance: SECUKINUMAB
     Indication: PSORIASIS
     Dosage: 300 MG, QMO
     Route: 065
     Dates: start: 20150501
  5. METHOTREXATE. [Concomitant]
     Active Substance: METHOTREXATE
     Indication: PSORIASIS
     Dosage: 5 MG, QW
     Route: 065
     Dates: start: 20180619, end: 20180801
  6. CALCIPOTRIENE AND BETAMETHASONE DIPROPIONATE [Concomitant]
     Active Substance: BETAMETHASONE DIPROPIONATE\CALCIPOTRIENE
     Indication: PSORIASIS
     Dosage: UNK UNK, QW
     Route: 061

REACTIONS (6)
  - Cough [Unknown]
  - Haemoptysis [Recovered/Resolved]
  - Dyspnoea [Unknown]
  - Oesophagitis [Recovered/Resolved]
  - Adenovirus infection [Unknown]
  - Dysphagia [Unknown]
